FAERS Safety Report 11359242 (Version 1)
Quarter: 2015Q3

REPORT INFORMATION
  Report Type: Spontaneous
  Country: US (occurrence: US)
  Receive Date: 20150807
  Receipt Date: 20150807
  Transmission Date: 20151125
  Serious: Yes (Hospitalization)
  Sender: FDA-Public Use
  Company Number: US-ABBVIE-15P-163-1438752-00

PATIENT
  Age: 50 Year
  Sex: Female

DRUGS (2)
  1. MODERIBA [Suspect]
     Active Substance: RIBAVIRIN
     Indication: CHRONIC HEPATITIS C
     Dosage: UNKNOWN DOSAGE; 12 WK THERAPY, STOPPED MEDICATION WITH 11 DAYS LEFT TO COMPLETE THERAPY.
     Route: 048
     Dates: start: 201504, end: 201507
  2. VIEKIRA PAK [Suspect]
     Active Substance: DASABUVIR\OMBITASVIR\PARITAPREVIR\RITONAVIR
     Indication: CHRONIC HEPATITIS C
     Dosage: 12 WK THERAPY, STOPPED MEDICATION WITH 11 DAYS LEFT TO COMPLETE THERAPY.
     Route: 048
     Dates: start: 201504, end: 201507

REACTIONS (2)
  - Small intestinal obstruction [Recovered/Resolved]
  - Arthritis [Not Recovered/Not Resolved]

NARRATIVE: CASE EVENT DATE: 2015
